FAERS Safety Report 4325765-9 (Version None)
Quarter: 2004Q1

REPORT INFORMATION
  Report Type: 
  Country: None (occurrence: None)
  Receive Date: 20040324
  Receipt Date: 20040312
  Transmission Date: 20041129
  Serious: Yes (Death)
  Sender: FDA-Public Use
  Company Number: US-JNJFOC-20040303147

PATIENT
  Age: 71 Year
  Sex: Female

DRUGS (7)
  1. REMICADE [Suspect]
     Indication: RHEUMATOID ARTHRITIS
     Dosage: INTRAVENOUS
     Route: 042
     Dates: start: 20020515, end: 20020528
  2. METHOTREXATE [Concomitant]
  3. CELEBREX [Concomitant]
  4. PREDNISONE [Concomitant]
  5. MULTIVITAMIN [Concomitant]
  6. CALCIUM (CALCIUM) [Concomitant]
  7. DARVOCET [Concomitant]

REACTIONS (1)
  - SEPSIS [None]
